FAERS Safety Report 4405028-3 (Version None)
Quarter: 2004Q3

REPORT INFORMATION
  Report Type: 
  Country: None (occurrence: None)
  Receive Date: 20040715
  Receipt Date: 20040707
  Transmission Date: 20050211
  Serious: Yes (Death, Life-Threatening)
  Sender: FDA-Public Use
  Company Number: PERC20040013

PATIENT
  Age: 46 Year
  Sex: Male
  Weight: 113.3993 kg

DRUGS (2)
  1. PERCOCET [Suspect]
     Dates: end: 20030301
  2. PROPOXYPHENE [Suspect]

REACTIONS (18)
  - BLADDER DILATATION [None]
  - BRAIN OEDEMA [None]
  - COMA [None]
  - COMPLETED SUICIDE [None]
  - CONGESTIVE CARDIOMYOPATHY [None]
  - CORONARY ARTERY ATHEROSCLEROSIS [None]
  - DILATATION VENTRICULAR [None]
  - ECCHYMOSIS [None]
  - GASTROINTESTINAL DISORDER [None]
  - HEPATIC CIRRHOSIS [None]
  - HEPATOMEGALY [None]
  - INTENTIONAL OVERDOSE [None]
  - LIVIDITY [None]
  - PULMONARY CONGESTION [None]
  - PUNCTURE SITE REACTION [None]
  - RENAL DISORDER [None]
  - SPLENOMEGALY [None]
  - THERAPEUTIC AGENT TOXICITY [None]
